FAERS Safety Report 7685444-7 (Version None)
Quarter: 2011Q3

REPORT INFORMATION
  Report Type: 
  Country: None (occurrence: None)
  Receive Date: 20110816
  Receipt Date: 20110802
  Transmission Date: 20111222
  Serious: Yes (Other)
  Sender: FDA-Public Use
  Company Number: US-JNJFOC-20110804294

PATIENT
  Sex: Female
  Weight: 58.97 kg

DRUGS (3)
  1. IBUPROFEN [Concomitant]
     Indication: ROTATOR CUFF SYNDROME
     Route: 048
     Dates: start: 20010101
  2. PANCREAZE [Suspect]
     Indication: IRRITABLE BOWEL SYNDROME
     Route: 048
     Dates: start: 20090101, end: 20100101
  3. CREON [Suspect]
     Indication: IRRITABLE BOWEL SYNDROME
     Route: 048
     Dates: start: 20100101

REACTIONS (3)
  - DIARRHOEA [None]
  - DYSPEPSIA [None]
  - CONCUSSION [None]
